FAERS Safety Report 10194982 (Version 1)
Quarter: 2014Q2

REPORT INFORMATION
  Report Type: Spontaneous
  Country: FR (occurrence: FR)
  Receive Date: 20140526
  Receipt Date: 20140526
  Transmission Date: 20141212
  Serious: Yes (Death, Hospitalization)
  Sender: FDA-Public Use
  Company Number: FR-PFIZER INC-2014141498

PATIENT
  Age: 90 Year
  Sex: Male

DRUGS (5)
  1. SERTRALINE PFIZER [Suspect]
     Indication: COGNITIVE DISORDER
     Dosage: 25 MG, UNK
     Route: 048
  2. CLOPIDOGREL WINTHROP [Suspect]
     Indication: PERIPHERAL ARTERIAL OCCLUSIVE DISEASE
     Dosage: UNK
     Route: 048
     Dates: start: 20131118
  3. RAMIPRIL ISOMED [Suspect]
     Indication: HYPERTENSION
     Dosage: UNK
     Route: 048
  4. ESOMEPRAZOLE RATIOPHARM [Suspect]
     Dosage: 20 MG, UNK
     Route: 048
  5. METFORMIN ISOMED [Suspect]
     Indication: TYPE 2 DIABETES MELLITUS
     Dosage: 500 MG, UNK
     Route: 048

REACTIONS (1)
  - Haemorrhagic stroke [Fatal]
